FAERS Safety Report 26097957 (Version 2)
Quarter: 2025Q4

REPORT INFORMATION
  Report Type: Spontaneous
  Country: US (occurrence: US)
  Receive Date: 20251127
  Receipt Date: 20251218
  Transmission Date: 20260117
  Serious: Yes (Hospitalization)
  Sender: TEVA
  Company Number: US-TEVA-VS-3395641

PATIENT
  Age: 43 Year
  Sex: Female

DRUGS (6)
  1. IBUPROFEN [Suspect]
     Active Substance: IBUPROFEN
     Indication: Urinary tract infection
     Dosage: BROWN PILLS
     Route: 065
  2. ESCITALOPRAM [Interacting]
     Active Substance: ESCITALOPRAM OXALATE
     Indication: Product used for unknown indication
     Route: 065
  3. PHENAZOPYRIDINE [Suspect]
     Active Substance: PHENAZOPYRIDINE
     Indication: Product used for unknown indication
     Route: 065
  4. OLANZAPINE [Suspect]
     Active Substance: OLANZAPINE
     Indication: Product used for unknown indication
     Route: 065
  5. METHYLENE BLUE [Interacting]
     Active Substance: METHYLENE BLUE
     Indication: Methaemoglobinaemia
     Dosage: TWO DOSES OF 1 MG/KG
     Route: 065
  6. DEVICE [Suspect]
     Active Substance: DEVICE
     Route: 065

REACTIONS (6)
  - Mental status changes [Recovered/Resolved]
  - Intentional overdose [Unknown]
  - Drug interaction [Unknown]
  - Drug ineffective [Unknown]
  - Methaemoglobinaemia [Recovered/Resolved]
  - Serotonin syndrome [Recovering/Resolving]
